FAERS Safety Report 9756752 (Version 1)
Quarter: 2013Q4

REPORT INFORMATION
  Report Type: Spontaneous
  Country: US (occurrence: US)
  Receive Date: 20131213
  Receipt Date: 20131213
  Transmission Date: 20140711
  Serious: No
  Sender: FDA-Public Use
  Company Number: US-B.I. PHARMACEUTICALS,INC./RIDGEFIELD-2013-BI-39591BP

PATIENT
  Sex: Female
  Weight: 73 kg

DRUGS (2)
  1. ZANTAC (RANITIDINE HYDROCHLORIDE) [Suspect]
     Indication: DYSPEPSIA
     Dosage: 600 MG
     Route: 048
     Dates: start: 2004, end: 2011
  2. ZANTAC (RANITIDINE HYDROCHLORIDE) [Suspect]
     Indication: DYSPEPSIA
     Dosage: 300 MG
     Route: 048
     Dates: start: 2011

REACTIONS (4)
  - Renal failure [Recovered/Resolved]
  - Chromaturia [Recovered/Resolved]
  - Incorrect drug administration duration [Not Recovered/Not Resolved]
  - Prescribed overdose [Recovered/Resolved]
